FAERS Safety Report 18721825 (Version 1)
Quarter: 2021Q1

REPORT INFORMATION
  Report Type: Spontaneous
  Country: US (occurrence: US)
  Receive Date: 20210111
  Receipt Date: 20210111
  Transmission Date: 20210419
  Serious: Yes (Other)
  Sender: FDA-Public Use
  Company Number: US-ROCHE-2744324

PATIENT
  Age: 45 Year
  Sex: Male

DRUGS (4)
  1. GAZYVA [Suspect]
     Active Substance: OBINUTUZUMAB
     Indication: PRODUCT USED FOR UNKNOWN INDICATION
     Route: 042
     Dates: end: 20200101
  2. GAZYVA [Suspect]
     Active Substance: OBINUTUZUMAB
     Route: 042
  3. VENCLEXTA [Suspect]
     Active Substance: VENETOCLAX
     Indication: CHRONIC LYMPHOCYTIC LEUKAEMIA
     Route: 048
     Dates: start: 20201112
  4. VENCLEXTA [Suspect]
     Active Substance: VENETOCLAX
     Dosage: ONGOING: YES
     Route: 048

REACTIONS (5)
  - Dizziness [Not Recovered/Not Resolved]
  - Renal impairment [Unknown]
  - Somnolence [Unknown]
  - Feeling abnormal [Not Recovered/Not Resolved]
  - Fatigue [Not Recovered/Not Resolved]

NARRATIVE: CASE EVENT DATE: 20201229
